FAERS Safety Report 4716361-X (Version None)
Quarter: 2005Q3

REPORT INFORMATION
  Report Type: 
  Country: None (occurrence: None)
  Receive Date: 20050715
  Receipt Date: 20050715
  Transmission Date: 20060218
  Serious: No
  Sender: FDA-Public Use
  Company Number: None

PATIENT
  Age: 20 Year
  Sex: Female

DRUGS (2)
  1. ORTHO EVRA [Suspect]
  2. MEDROXYPROGESTERONE ACETATE INJ [Suspect]

REACTIONS (1)
  - DEEP VEIN THROMBOSIS [None]
